FAERS Safety Report 10055685 (Version 1)
Quarter: 2014Q2

REPORT INFORMATION
  Report Type: Spontaneous
  Country: US (occurrence: None)
  Receive Date: 20140402
  Receipt Date: 20140402
  Transmission Date: 20141212
  Serious: Yes (Other)
  Sender: FDA-Public Use
  Company Number: None

PATIENT
  Age: 19 Year
  Sex: Male
  Weight: 92.08 kg

DRUGS (1)
  1. LAMICTAL 200 MG [Suspect]
     Indication: MOOD ALTERED
     Dosage: 1 PILL, ONCE DAILY, TAKEN BY MOUTH
     Route: 048

REACTIONS (3)
  - Drug dose omission [None]
  - Drug dependence [None]
  - Withdrawal syndrome [None]
